FAERS Safety Report 6420885-7 (Version None)
Quarter: 2009Q4

REPORT INFORMATION
  Report Type: 
  Country: None (occurrence: None)
  Receive Date: 20091030
  Receipt Date: 20091020
  Transmission Date: 20100525
  Serious: Yes (Other)
  Sender: FDA-Public Use
  Company Number: TW-JNJFOC-20091007057

PATIENT
  Age: 46 Year
  Sex: Female

DRUGS (8)
  1. HALOPERIDOL [Suspect]
     Route: 065
  2. HALOPERIDOL [Suspect]
     Route: 065
  3. HALOPERIDOL [Suspect]
     Indication: AGITATION
     Route: 065
  4. LITHIUM [Interacting]
     Indication: IRRITABILITY
     Route: 065
  5. ARIPIPRAZOLE [Suspect]
     Indication: DRUG USE FOR UNKNOWN INDICATION
     Route: 065
  6. TRIHEXYPHENIDYL HCL [Suspect]
     Indication: PROPHYLAXIS
     Route: 065
  7. BIPERIDEN HYDROCHLORIDE TAB [Suspect]
     Indication: DRUG USE FOR UNKNOWN INDICATION
     Route: 065
  8. ANTIDIABETIC MEDICATION [Concomitant]
     Indication: DIABETES MELLITUS
     Route: 048

REACTIONS (11)
  - DRUG INTERACTION [None]
  - EXTRAPYRAMIDAL DISORDER [None]
  - IRRITABILITY [None]
  - MUSCLE RIGIDITY [None]
  - PARKINSONISM [None]
  - PLEUROTHOTONUS [None]
  - POLYDIPSIA [None]
  - POLYURIA [None]
  - PSYCHOMOTOR HYPERACTIVITY [None]
  - PSYCHOTIC DISORDER [None]
  - TREMOR [None]
